FAERS Safety Report 18595250 (Version 1)
Quarter: 2020Q4

REPORT INFORMATION
  Report Type: Report from Study
  Country: CA (occurrence: CA)
  Receive Date: 20201209
  Receipt Date: 20201209
  Transmission Date: 20210114
  Serious: Yes (Hospitalization, Other)
  Sender: FDA-Public Use
  Company Number: CA-BAYER-2019-150855

PATIENT
  Age: 25 Year
  Sex: Female

DRUGS (5)
  1. ADEMPAS [Suspect]
     Active Substance: RIOCIGUAT
     Indication: PULMONARY HYPERTENSION
     Dosage: 0.5 MG, TID
     Route: 048
     Dates: start: 20190811
  2. APIXABAN [Suspect]
     Active Substance: APIXABAN
     Dosage: UNK
  3. ADEMPAS [Suspect]
     Active Substance: RIOCIGUAT
     Indication: PULMONARY HYPERTENSION
     Dosage: 2.5 MG, TID
     Route: 048
  4. REMICADE [Concomitant]
     Active Substance: INFLIXIMAB
     Indication: VASCULITIS
     Dosage: UNK
  5. ADEMPAS [Suspect]
     Active Substance: RIOCIGUAT
     Indication: PULMONARY HYPERTENSION
     Dosage: 1.5 MG,TID
     Route: 048

REACTIONS (7)
  - Emotional disorder [Unknown]
  - Haemorrhage [Not Recovered/Not Resolved]
  - Haemoptysis [None]
  - Feeling hot [Recovered/Resolved]
  - Hot flush [None]
  - Blood pressure diastolic decreased [None]
  - Haemorrhage [Not Recovered/Not Resolved]

NARRATIVE: CASE EVENT DATE: 201908
